FAERS Safety Report 10925069 (Version 2)
Quarter: 2015Q2

REPORT INFORMATION
  Report Type: Spontaneous
  Country: US (occurrence: US)
  Receive Date: 20150318
  Receipt Date: 20150524
  Transmission Date: 20150821
  Serious: No
  Sender: FDA-Public Use
  Company Number: US-JNJFOC-20140310711

PATIENT
  Sex: Female
  Weight: 77.57 kg

DRUGS (4)
  1. KETOCONAZOLE 2% [Suspect]
     Active Substance: KETOCONAZOLE
     Indication: ECZEMA
     Route: 062
  2. KETOCONAZOLE 2% [Suspect]
     Active Substance: KETOCONAZOLE
     Indication: PRURITUS
     Route: 062
     Dates: start: 201305
  3. KETOCONAZOLE 2% [Suspect]
     Active Substance: KETOCONAZOLE
     Indication: ECZEMA
     Route: 062
     Dates: start: 201305
  4. KETOCONAZOLE 2% [Suspect]
     Active Substance: KETOCONAZOLE
     Indication: PRURITUS
     Route: 062

REACTIONS (3)
  - Drug dose omission [Unknown]
  - Alopecia [Not Recovered/Not Resolved]
  - Product use issue [Unknown]
